FAERS Safety Report 13989906 (Version 3)
Quarter: 2017Q4

REPORT INFORMATION
  Report Type: Report from Study
  Country: RU (occurrence: RU)
  Receive Date: 20170920
  Receipt Date: 20171013
  Transmission Date: 20180321
  Serious: Yes (Death)
  Sender: FDA-Public Use
  Company Number: RU-ROCHE-1994189

PATIENT

DRUGS (1)
  1. TOCILIZUMAB. [Suspect]
     Active Substance: TOCILIZUMAB
     Indication: JUVENILE IDIOPATHIC ARTHRITIS
     Dosage: 12 MG/KG IF WEIGHT WAS{30 KG AND 8 MG/KG IF WEIGHT }/=30 KG
     Route: 042

REACTIONS (1)
  - Amyloidosis [Fatal]
